FAERS Safety Report 16581604 (Version 2)
Quarter: 2020Q1

REPORT INFORMATION
  Report Type: Report from Study
  Country: None (occurrence: US)
  Receive Date: 20190716
  Receipt Date: 20200313
  Transmission Date: 20200409
  Serious: Yes (Hospitalization)
  Sender: FDA-Public Use
  Company Number: US-ABBVIE-18P-163-2289476-00

PATIENT
  Age: 37 Year
  Sex: Male
  Weight: 135 kg

DRUGS (4)
  1. AZATHIOPRINE. [Suspect]
     Active Substance: AZATHIOPRINE
     Indication: COLITIS ULCERATIVE
     Route: 048
     Dates: start: 20120808, end: 201802
  2. CULTURELLE [Concomitant]
     Active Substance: LACTOBACILLUS RHAMNOSUS
     Indication: COLITIS ULCERATIVE
     Dosage: DOSE: 10 BILLION CELL CAPS
     Route: 048
     Dates: start: 2013
  3. HUMIRA [Suspect]
     Active Substance: ADALIMUMAB
     Indication: COLITIS ULCERATIVE
     Route: 058
     Dates: start: 20170112, end: 201802
  4. COLAZAL [Concomitant]
     Active Substance: BALSALAZIDE DISODIUM
     Indication: COLITIS ULCERATIVE
     Route: 048
     Dates: start: 2012

REACTIONS (1)
  - Colitis [Recovered/Resolved]

NARRATIVE: CASE EVENT DATE: 20180312
